FAERS Safety Report 13380634 (Version 1)
Quarter: 2017Q1

REPORT INFORMATION
  Report Type: Spontaneous
  Country: US (occurrence: US)
  Receive Date: 20170329
  Receipt Date: 20170329
  Transmission Date: 20170429
  Serious: Yes (Death, Life-Threatening, Hospitalization, Other)
  Sender: FDA-Public Use
  Company Number: US-ACCORD-049549

PATIENT
  Age: 58 Year
  Sex: Male

DRUGS (4)
  1. CLOZAPINE. [Suspect]
     Active Substance: CLOZAPINE
     Indication: SCHIZOPHRENIA
  2. DIPHENHYDRAMINE. [Suspect]
     Active Substance: DIPHENHYDRAMINE
     Indication: PRODUCT USED FOR UNKNOWN INDICATION
  3. ATENOLOL/ATENOLOL HYDROCHLORIDE [Concomitant]
     Indication: HYPERTENSION
  4. QUETIAPINE/QUETIAPINE FUMARATE [Concomitant]
     Indication: SCHIZOPHRENIA

REACTIONS (9)
  - Ischaemic hepatitis [Fatal]
  - Gastrointestinal hypomotility [Fatal]
  - Pneumonia aspiration [Unknown]
  - Respiratory failure [Unknown]
  - Shock [Unknown]
  - Megacolon [Fatal]
  - Renal failure [Fatal]
  - Abdominal compartment syndrome [Unknown]
  - Disseminated intravascular coagulation [Fatal]
